FAERS Safety Report 15299851 (Version 2)
Quarter: 2018Q3

REPORT INFORMATION
  Report Type: Spontaneous
  Country: DO (occurrence: DO)
  Receive Date: 20180821
  Receipt Date: 20180913
  Transmission Date: 20181010
  Serious: Yes (Death, Hospitalization, Other)
  Sender: FDA-Public Use
  Company Number: DO-SA-2018SA227677

PATIENT
  Age: 47 Year
  Sex: Female

DRUGS (1)
  1. FABRAZYME [Suspect]
     Active Substance: AGALSIDASE BETA
     Indication: FABRY^S DISEASE
     Dosage: UNK
     Route: 041
     Dates: start: 20141217, end: 20180802

REACTIONS (6)
  - Chest pain [Fatal]
  - Cardiogenic shock [Fatal]
  - Arrhythmia [Fatal]
  - Dyspnoea [Fatal]
  - Atrial fibrillation [Fatal]
  - Arrhythmia [Unknown]

NARRATIVE: CASE EVENT DATE: 201808
